FAERS Safety Report 9457485 (Version 1)
Quarter: 2013Q3

REPORT INFORMATION
  Report Type: Spontaneous
  Country: US (occurrence: None)
  Receive Date: 20130812
  Receipt Date: 20130812
  Transmission Date: 20140515
  Serious: Yes (Hospitalization, Disabling)
  Sender: FDA-Public Use
  Company Number: None

PATIENT
  Age: 13 Year
  Sex: Female
  Weight: 33.57 kg

DRUGS (1)
  1. REGLAN [Suspect]
     Indication: CONSTIPATION
     Route: 048
     Dates: start: 20130102, end: 20130103

REACTIONS (2)
  - Dystonia [None]
  - Psychotic disorder [None]
